FAERS Safety Report 5374985-3 (Version None)
Quarter: 2007Q2

REPORT INFORMATION
  Report Type: 
  Country: None (occurrence: None)
  Receive Date: 20070629
  Receipt Date: 20070620
  Transmission Date: 20071010
  Serious: Yes (Hospitalization, Other)
  Sender: FDA-Public Use
  Company Number: US-ROCHE-494043

PATIENT
  Age: 34 Year
  Sex: Female
  Weight: 65.8 kg

DRUGS (10)
  1. ACCUTANE [Suspect]
     Indication: ACNE
     Route: 065
     Dates: start: 19880101, end: 19880101
  2. ACCUTANE [Suspect]
     Route: 065
     Dates: start: 19920601, end: 19921001
  3. ACCUTANE [Suspect]
     Route: 065
     Dates: start: 19930401, end: 19930801
  4. CORTISPORIN [Concomitant]
     Indication: OTITIS EXTERNA
     Route: 001
     Dates: start: 19920923
  5. TOPICORT [Concomitant]
     Route: 061
     Dates: start: 19920923
  6. PREDNISONE TAB [Concomitant]
     Route: 048
  7. ASACOL [Concomitant]
     Route: 048
  8. DOXYCYCLINE [Concomitant]
  9. AMOXICILLIN [Concomitant]
  10. MINOCYCLINE HCL [Concomitant]

REACTIONS (9)
  - ANGIOPATHY [None]
  - ANXIETY [None]
  - COLITIS ULCERATIVE [None]
  - FOOT FRACTURE [None]
  - INFERTILITY [None]
  - INFLAMMATORY BOWEL DISEASE [None]
  - LIPOMA [None]
  - OTITIS EXTERNA [None]
  - PANIC ATTACK [None]
